FAERS Safety Report 7803768-7 (Version None)
Quarter: 2011Q4

REPORT INFORMATION
  Report Type: 
  Country: None (occurrence: None)
  Receive Date: 20111010
  Receipt Date: 20111003
  Transmission Date: 20120403
  Serious: Yes (Other)
  Sender: FDA-Public Use
  Company Number: US-PFIZER INC-2011174904

PATIENT
  Sex: Male
  Weight: 83 kg

DRUGS (3)
  1. CREON [Concomitant]
     Dosage: 5
     Route: 048
  2. OCTREOTIDE [Concomitant]
  3. SUTENT [Suspect]
     Indication: NEUROECTODERMAL NEOPLASM
     Dosage: 12.5 MG, 3X/DAY, TDD 37.5 MG
     Route: 048
     Dates: start: 20110421

REACTIONS (4)
  - PALMAR-PLANTAR ERYTHRODYSAESTHESIA SYNDROME [None]
  - GLOSSODYNIA [None]
  - HAIR COLOUR CHANGES [None]
  - DIARRHOEA [None]
